FAERS Safety Report 26022809 (Version 1)
Quarter: 2025Q4

REPORT INFORMATION
  Report Type: Spontaneous
  Country: US (occurrence: US)
  Receive Date: 20251110
  Receipt Date: 20251110
  Transmission Date: 20260118
  Serious: Yes (Other)
  Sender: INCYTE
  Company Number: US-EVENT-004862

PATIENT

DRUGS (2)
  1. NIKTIMVO [Suspect]
     Active Substance: AXATILIMAB-CSFR
     Dosage: UNK
  2. NIKTIMVO [Suspect]
     Active Substance: AXATILIMAB-CSFR
     Dosage: SLOWED INFUSION RATE (1HR)

REACTIONS (3)
  - Tachycardia [Unknown]
  - Tachypnoea [Unknown]
  - Dyspnoea [Unknown]
